FAERS Safety Report 10590277 (Version 1)
Quarter: 2014Q4

REPORT INFORMATION
  Report Type: Spontaneous
  Country: US (occurrence: None)
  Receive Date: 20141117
  Receipt Date: 20141117
  Transmission Date: 20150529
  Serious: Yes (Life-Threatening, Disabling)
  Sender: FDA-Public Use
  Company Number: None

PATIENT
  Age: 52 Year
  Sex: Male
  Weight: 87.54 kg

DRUGS (1)
  1. PRISTIQ EXTENDED-RELEASE [Suspect]
     Active Substance: DESVENLAFAXINE SUCCINATE
     Indication: DEPRESSION
     Route: 048
     Dates: start: 20041101, end: 20141113

REACTIONS (7)
  - Depression [None]
  - Anxiety [None]
  - Hypertension [None]
  - Thinking abnormal [None]
  - Memory impairment [None]
  - Suicidal ideation [None]
  - Hyperhidrosis [None]

NARRATIVE: CASE EVENT DATE: 20141113
